FAERS Safety Report 5889771-5 (Version None)
Quarter: 2008Q3

REPORT INFORMATION
  Report Type: 
  Country: None (occurrence: None)
  Receive Date: 20080919
  Receipt Date: 20080916
  Transmission Date: 20090109
  Serious: Yes (Other)
  Sender: FDA-Public Use
  Company Number: US-ASTRAZENECA-2008UW13835

PATIENT
  Age: 72 Year
  Sex: Female
  Weight: 65.3 kg

DRUGS (8)
  1. CRESTOR [Suspect]
     Dosage: 10MG
     Route: 048
  2. CRESTOR [Suspect]
     Dosage: 10MG
     Route: 048
  3. ANTIVERT [Concomitant]
  4. AVALIDE [Concomitant]
     Dosage: 12.5-150 MG PO QD
     Route: 048
  5. COQ-10 [Concomitant]
     Route: 048
  6. DARVOCET-N 100 [Concomitant]
     Dosage: 100 NAPSYLATE 650MG-100MG
     Route: 048
  7. NITROSTAT [Concomitant]
     Dosage: 0.4MG
  8. VOLTAREN [Concomitant]

REACTIONS (4)
  - MYOPATHY [None]
  - RHEUMATOID ARTHRITIS [None]
  - ROTATOR CUFF REPAIR [None]
  - SYSTEMIC LUPUS ERYTHEMATOSUS [None]
